FAERS Safety Report 5792645-1 (Version None)
Quarter: 2008Q2

REPORT INFORMATION
  Report Type: 
  Country: None (occurrence: None)
  Receive Date: 20080624
  Receipt Date: 20080609
  Transmission Date: 20081010
  Serious: Yes (Hospitalization)
  Sender: FDA-Public Use
  Company Number: 000#8#2008-00115

PATIENT
  Age: 86 Year
  Sex: Male

DRUGS (22)
  1. ISOSORBIDE MONONITRATE [Suspect]
     Indication: CONVULSION PROPHYLAXIS
     Dosage: 15 MG
  2. GLYCERYL TRINITRATE (DOSE UNKNOWN), UNKNOWN (GLYCERYL TRINITRATE) [Suspect]
     Dosage: SUBLINGUAL
     Route: 060
  3. ASPIRIN [Suspect]
     Dosage: LOW DOSE
  4. CLOPIDOGREL [Suspect]
  5. DONEPEZIL HCL [Suspect]
     Dosage: 10 MG
  6. CYPROHEPTADINE HCL [Suspect]
     Dosage: 4 MG
  7. FAMOTIDINE [Suspect]
     Dosage: 40 MG
  8. FLUNISOLIDE [Suspect]
  9. FUROSEMIDE [Suspect]
     Dosage: (20 MG 3 IN 1 WEEK (S))
  10. INSULIN INSULATARD NPH NORDISK [Suspect]
     Dosage: 15 IU
  11. INSULIN ASPART (INSULIN ASPART) [Suspect]
  12. ALBUTEROL/IPRATROPIUM (IPRATROPIUM, SALBUTAMOL) [Suspect]
  13. MOMETASONE FUROATE [Suspect]
     Dosage: RESPIRATORY (PER INHALATION)
     Route: 055
  14. LEVETIRACETAM [Suspect]
     Indication: CONVULSION PROPHYLAXIS
     Dosage: 2000 MG (1000 MG 2 IN 1 DAY(S))
  15. LISINOPRIL [Suspect]
     Dosage: 2.5 MG
  16. MAGNESIUM GLUCONATE (MAGNESIUM GLUCONATE) [Suspect]
     Dosage: 500 MG
  17. METOCLOPRAMIDE [Suspect]
     Dosage: 40 MG (10 MG 4 IN 1 DAY (S))
  18. METOPROLOL TARTRATE [Suspect]
     Dosage: 75 MG
  19. MODAFINIL [Suspect]
     Indication: APATHY
  20. MODAFINIL [Suspect]
     Indication: FATIGUE
  21. SERTRALINE [Suspect]
     Dosage: 75 MG
  22. SIMVASTATIN [Suspect]
     Dosage: 40 MG

REACTIONS (7)
  - ANOREXIA [None]
  - DEHYDRATION [None]
  - IMPAIRED GASTRIC EMPTYING [None]
  - MYOCARDIAL INFARCTION [None]
  - NAUSEA [None]
  - ORAL INTAKE REDUCED [None]
  - RENAL IMPAIRMENT [None]
